FAERS Safety Report 4804733-4 (Version None)
Quarter: 2005Q4

REPORT INFORMATION
  Report Type: 
  Country: None (occurrence: None)
  Receive Date: 20051020
  Receipt Date: 20051010
  Transmission Date: 20060501
  Serious: Yes (Congenital Anomaly)
  Sender: FDA-Public Use
  Company Number: GB-JNJFOC-20051004049

PATIENT

DRUGS (3)
  1. RISPERIDONE [Suspect]
     Indication: ANXIETY
     Route: 064
  2. VENLAFAXINE HCL [Suspect]
     Indication: DEPRESSION
     Route: 064
  3. AMITRIPTYLINE HCL [Suspect]
     Indication: DEPRESSION
     Dosage: AT NOCTE
     Route: 064

REACTIONS (1)
  - CONGENITAL ANOMALY [None]
